FAERS Safety Report 5006835-9 (Version None)
Quarter: 2006Q2

REPORT INFORMATION
  Report Type: 
  Country: None (occurrence: None)
  Receive Date: 20060516
  Receipt Date: 20060502
  Transmission Date: 20061013
  Serious: Yes (Death)
  Sender: FDA-Public Use
  Company Number: 2006RR-02234

PATIENT
  Age: 45 Year
  Sex: Male
  Weight: 57 kg

DRUGS (4)
  1. FLUOXETINE [Suspect]
  2. COCAINE [Suspect]
  3. CANNABIS [Suspect]
  4. SUBUTEX [Suspect]

REACTIONS (7)
  - ARTERIOSCLEROSIS [None]
  - ARTERIOSCLEROSIS CORONARY ARTERY [None]
  - CARDIAC DISORDER [None]
  - DRUG INTERACTION [None]
  - OVERDOSE [None]
  - RENAL ARTERITIS [None]
  - RENAL DISORDER [None]
